FAERS Safety Report 9179441 (Version 1)
Quarter: 2012Q4

REPORT INFORMATION
  Report Type: Report from Study
  Country: CA (occurrence: CA)
  Receive Date: 20121029
  Receipt Date: 20121029
  Transmission Date: 20130627
  Serious: Yes (Hospitalization)
  Sender: FDA-Public Use
  Company Number: CA-UCBSA-068430

PATIENT
  Age: 55 Year
  Sex: Male
  Weight: 58.2 kg

DRUGS (1)
  1. CIMZIA [Suspect]
     Indication: CROHN^S DISEASE
     Route: 058
     Dates: start: 20120831, end: 20120907

REACTIONS (1)
  - Anal abscess [Not Recovered/Not Resolved]
